FAERS Safety Report 22614768 (Version 1)
Quarter: 2023Q2

REPORT INFORMATION
  Report Type: Spontaneous
  Country: GB (occurrence: GB)
  Receive Date: 20230619
  Receipt Date: 20230619
  Transmission Date: 20230722
  Serious: Yes (Life-Threatening, Other)
  Sender: FDA-Public Use
  Company Number: None

PATIENT
  Age: 55 Year
  Sex: Female

DRUGS (1)
  1. FLUOXETINE [Suspect]
     Active Substance: FLUOXETINE HYDROCHLORIDE
     Indication: Product used for unknown indication

REACTIONS (5)
  - Agitation [Recovered/Resolved with Sequelae]
  - Anxiety [Unknown]
  - Depression [Unknown]
  - Self-injurious ideation [Unknown]
  - Hallucination [Unknown]

NARRATIVE: CASE EVENT DATE: 20230501
